FAERS Safety Report 5628446-4 (Version None)
Quarter: 2008Q1

REPORT INFORMATION
  Report Type: 
  Country: None (occurrence: None)
  Receive Date: 20080215
  Receipt Date: 20080212
  Transmission Date: 20080703
  Serious: Yes (Hospitalization)
  Sender: FDA-Public Use
  Company Number: US-BRISTOL-MYERS SQUIBB COMPANY-14036982

PATIENT
  Age: 52 Year
  Sex: Male
  Weight: 97 kg

DRUGS (3)
  1. ERBITUX [Suspect]
     Indication: SQUAMOUS CELL CARCINOMA
     Dosage: START DATE OF FIRST COURSE: 05DEC'07.DOSE 2984MG(400MG/M2 LOADING DOSE AND 250MG/M2 SUBS. INFUSION)
     Route: 042
     Dates: start: 20071231, end: 20071231
  2. CISPLATIN [Suspect]
     Indication: SQUAMOUS CELL CARCINOMA
     Dosage: START DATE OF FIRST COURSE: 05DEC'07.
     Route: 042
     Dates: start: 20071231, end: 20071231
  3. RADIATION THERAPY [Suspect]
     Indication: SQUAMOUS CELL CARCINOMA
     Dosage: 1 DOSAGE FORM = 46 GY X 23 FRACTIONS. FIRST RADIATION THERAPY ON 11-DEC-2007.
     Dates: start: 20080107, end: 20080107

REACTIONS (4)
  - DEHYDRATION [None]
  - NAUSEA [None]
  - STOMATITIS [None]
  - VOMITING [None]
